APPROVED DRUG PRODUCT: DONEPEZIL HYDROCHLORIDE
Active Ingredient: DONEPEZIL HYDROCHLORIDE
Strength: 5MG
Dosage Form/Route: TABLET, ORALLY DISINTEGRATING;ORAL
Application: A201787 | Product #001 | TE Code: AB
Applicant: MACLEODS PHARMACEUTICALS LTD
Approved: Dec 14, 2012 | RLD: No | RS: No | Type: RX